FAERS Safety Report 8938434 (Version 1)
Quarter: 2012Q4

REPORT INFORMATION
  Report Type: 
  Country: BR (occurrence: BR)
  Receive Date: 20121130
  Receipt Date: 20121130
  Transmission Date: 20130627
  Serious: Yes (Hospitalization, Other)
  Sender: FDA-Public Use
  Company Number: BR-BRISTOL-MYERS SQUIBB COMPANY-17152919

PATIENT
  Age: 60 Year
  Sex: Male
  Weight: 85 kg

DRUGS (7)
  1. ONGLYZA TABS 5 MG [Suspect]
     Indication: DIABETES MELLITUS
     Route: 048
  2. METFORMIN [Suspect]
  3. HYDROCHLOROTHIAZIDE [Concomitant]
     Dates: end: 201211
  4. LOSARTAN [Concomitant]
     Dates: start: 201211
  5. PURAN T4 [Concomitant]
     Dates: start: 201211
  6. FUROSEMIDE [Concomitant]
     Dates: start: 201211
  7. ATENOLOL [Concomitant]
     Dates: end: 201211

REACTIONS (2)
  - Arrhythmia [Unknown]
  - Blood glucose increased [Recovering/Resolving]
